FAERS Safety Report 6675201-2 (Version None)
Quarter: 2010Q2

REPORT INFORMATION
  Report Type: 
  Country: None (occurrence: None)
  Receive Date: 20100409
  Receipt Date: 20100330
  Transmission Date: 20101027
  Serious: Yes (Death, Hospitalization)
  Sender: FDA-Public Use
  Company Number: US-JNJFOC-20100110833

PATIENT
  Age: 6 Year
  Sex: Male

DRUGS (10)
  1. CHILDREN'S MOTRIN [Suspect]
     Route: 048
  2. CHILDREN'S MOTRIN [Suspect]
     Indication: DRUG USE FOR UNKNOWN INDICATION
     Route: 048
  3. CHILDREN'S MOTRIN BUBBLE GUM ORAL [Suspect]
     Route: 048
  4. CHILDREN'S MOTRIN BUBBLE GUM ORAL [Suspect]
     Indication: DRUG USE FOR UNKNOWN INDICATION
     Route: 048
  5. CHILDREN'S TYLENOL BUBBLEGUM BURST [Suspect]
     Route: 048
  6. CHILDREN'S TYLENOL BUBBLEGUM BURST [Suspect]
     Indication: DRUG USE FOR UNKNOWN INDICATION
     Route: 048
  7. CHILDREN'S TYLENOL PLUS MULTI-SYMPTOM COLD GRAPE [Suspect]
     Indication: DRUG USE FOR UNKNOWN INDICATION
     Route: 048
  8. FLINSTONES MULTIVITAMIN [Concomitant]
  9. FERROUS SULFATE TAB [Concomitant]
  10. PREDNISONE TAB [Concomitant]

REACTIONS (8)
  - DIARRHOEA [None]
  - HYPOTENSION [None]
  - PNEUMONIA [None]
  - RENAL FAILURE [None]
  - SEPSIS [None]
  - THROMBOCYTOPENIA [None]
  - TRANSMISSION OF AN INFECTIOUS AGENT VIA A MEDICINAL PRODUCT [None]
  - VOMITING [None]
